FAERS Safety Report 5663987-5 (Version None)
Quarter: 2008Q1

REPORT INFORMATION
  Report Type: 
  Country: None (occurrence: None)
  Receive Date: 20080314
  Receipt Date: 20080310
  Transmission Date: 20080703
  Serious: Yes (Hospitalization)
  Sender: FDA-Public Use
  Company Number: DE-WYE-G00833508

PATIENT
  Sex: Female

DRUGS (2)
  1. TREVILOR [Suspect]
     Indication: DEPRESSION
     Route: 048
     Dates: start: 20071001, end: 20071101
  2. TREVILOR [Suspect]
     Route: 048
     Dates: start: 20071101

REACTIONS (4)
  - BLOOD PRESSURE INCREASED [None]
  - OPTIC NEURITIS RETROBULBAR [None]
  - VISION BLURRED [None]
  - VISUAL ACUITY REDUCED [None]
